FAERS Safety Report 8231041-4 (Version None)
Quarter: 2012Q1

REPORT INFORMATION
  Report Type: 
  Country: None (occurrence: None)
  Receive Date: 20120323
  Receipt Date: 20120320
  Transmission Date: 20120608
  Serious: Yes (Life-Threatening, Hospitalization)
  Sender: FDA-Public Use
  Company Number: US-CELGENEUS-163-21880-12032322

PATIENT
  Sex: Male

DRUGS (9)
  1. VITAMIN D [Concomitant]
     Route: 065
  2. REVLIMID [Suspect]
     Indication: MULTIPLE MYELOMA
     Dosage: 10 MILLIGRAM
     Route: 048
     Dates: start: 20110301, end: 20120319
  3. OMEPRAZOLE [Concomitant]
     Dosage: 20 MILLIGRAM
     Route: 065
  4. FISH OIL [Concomitant]
     Route: 065
  5. CITALOPRAM HYDROBROMIDE [Concomitant]
     Dosage: 20 MILLIGRAM
     Route: 065
  6. FENTANYL [Concomitant]
     Dosage: 75 MICROGRAM
     Route: 065
  7. DILANTIN [Concomitant]
     Dosage: 100 MILLIGRAM
     Route: 065
  8. PERCOCET [Concomitant]
     Dosage: 10/25
     Route: 065
  9. CALCIUM + D [Concomitant]
     Dosage: 600 MILLIGRAM
     Route: 065

REACTIONS (2)
  - CHRONIC OBSTRUCTIVE PULMONARY DISEASE [None]
  - FULL BLOOD COUNT DECREASED [None]
